FAERS Safety Report 9557490 (Version 1)
Quarter: 2013Q3

REPORT INFORMATION
  Report Type: Spontaneous
  Country: US (occurrence: None)
  Receive Date: 20130726
  Receipt Date: 20130726
  Transmission Date: 20140515
  Serious: Yes (Hospitalization)
  Sender: FDA-Public Use
  Company Number: UTC-022292

PATIENT
  Age: 66 Year
  Sex: Male
  Weight: 66.81 kg

DRUGS (3)
  1. REMODULIN [Suspect]
     Indication: COR PULMONALE CHRONIC
     Dosage: 116.64 UG/KG (0.081 UG/KG, 1 IN 1 MIN), SUBCUTANEOUS
     Route: 058
     Dates: start: 20110103
  2. ADCIRCA (TADALAFIL) (UNKNOWN) [Concomitant]
  3. LETAIRIS (AMBRISENTAN) (UNKNOWN) [Concomitant]

REACTIONS (5)
  - Infusion site reaction [None]
  - Drug dose omission [None]
  - Asthenia [None]
  - Dizziness [None]
  - Presyncope [None]
